FAERS Safety Report 6818420-4 (Version None)
Quarter: 2010Q3

REPORT INFORMATION
  Report Type: 
  Country: None (occurrence: None)
  Receive Date: 20100706
  Receipt Date: 20080329
  Transmission Date: 20110219
  Serious: No
  Sender: FDA-Public Use
  Company Number: US-PFIZER INC-2008008770

PATIENT
  Sex: Female
  Weight: 72.57 kg

DRUGS (3)
  1. AZITHROMYCIN [Suspect]
     Indication: UPPER RESPIRATORY TRACT INFECTION
     Route: 048
     Dates: start: 20080104, end: 20080106
  2. LIPITOR [Concomitant]
  3. HYZAAR [Concomitant]

REACTIONS (1)
  - MEDICATION RESIDUE [None]
